FAERS Safety Report 9881716 (Version 1)
Quarter: 2014Q1

REPORT INFORMATION
  Report Type: Spontaneous
  Country: US (occurrence: US)
  Receive Date: 20140207
  Receipt Date: 20140207
  Transmission Date: 20141002
  Serious: No
  Sender: FDA-Public Use
  Company Number: US-GILEAD-2012-0049020

PATIENT
  Age: 35 Year
  Sex: Male

DRUGS (5)
  1. TRUVADA [Suspect]
     Indication: HIV INFECTION
     Dosage: UNK
     Dates: start: 201105
  2. TRUVADA [Suspect]
     Dosage: UNK
     Dates: start: 201106
  3. NORVIR [Concomitant]
     Indication: HIV INFECTION
     Dosage: UNK
     Dates: start: 201105
  4. REYATAZ [Concomitant]
     Indication: HIV INFECTION
  5. ISENTRESS [Concomitant]
     Indication: HIV INFECTION
     Dosage: UNK
     Dates: start: 201106

REACTIONS (4)
  - Sunburn [Unknown]
  - Urine output increased [Unknown]
  - Weight increased [Unknown]
  - Urticaria [Unknown]
